FAERS Safety Report 24668573 (Version 2)
Quarter: 2024Q4

REPORT INFORMATION
  Report Type: Report from Study
  Country: CN (occurrence: CN)
  Receive Date: 20241127
  Receipt Date: 20241230
  Transmission Date: 20250114
  Serious: Yes (Disabling)
  Sender: ROCHE
  Company Number: CN-ROCHE-10000139258

PATIENT
  Age: 44 Year
  Sex: Male

DRUGS (2)
  1. ENSPRYNG [Suspect]
     Active Substance: SATRALIZUMAB-MWGE
     Indication: Neuromyelitis optica spectrum disorder
     Route: 058
     Dates: start: 20240618
  2. PREGABALIN [Concomitant]
     Active Substance: PREGABALIN

REACTIONS (3)
  - Osteonecrosis [Not Recovered/Not Resolved]
  - Movement disorder [Unknown]
  - Muscle spasms [Not Recovered/Not Resolved]

NARRATIVE: CASE EVENT DATE: 20240618
